FAERS Safety Report 13417839 (Version 1)
Quarter: 2017Q2

REPORT INFORMATION
  Report Type: Spontaneous
  Country: US (occurrence: US)
  Receive Date: 20170406
  Receipt Date: 20170406
  Transmission Date: 20170830
  Serious: Yes (Other)
  Sender: FDA-Public Use
  Company Number: US-009507513-1703USA013294

PATIENT
  Age: 28 Year
  Sex: Female

DRUGS (2)
  1. NUVARING [Suspect]
     Active Substance: ETHINYL ESTRADIOL\ETONOGESTREL
     Indication: CONTRACEPTION
     Route: 067
  2. ZOLOFT [Concomitant]
     Active Substance: SERTRALINE HYDROCHLORIDE

REACTIONS (5)
  - Unintended pregnancy [Recovered/Resolved]
  - Abortion induced [Recovered/Resolved]
  - Device expulsion [Unknown]
  - Pregnancy with contraceptive device [Recovered/Resolved]
  - Accidental underdose [Unknown]
